FAERS Safety Report 6677568-8 (Version None)
Quarter: 2010Q2

REPORT INFORMATION
  Report Type: 
  Country: None (occurrence: None)
  Receive Date: 20100412
  Receipt Date: 20100217
  Transmission Date: 20101027
  Serious: No
  Sender: FDA-Public Use
  Company Number: US-ALEXION-A201000221

PATIENT
  Sex: Female

DRUGS (6)
  1. SOLIRIS [Suspect]
     Indication: PAROXYSMAL NOCTURNAL HAEMOGLOBINURIA
     Dosage: 600 MG, QW
     Route: 042
     Dates: start: 20090120, end: 20090201
  2. SOLIRIS [Suspect]
     Dosage: 900 MG, Q2W
     Route: 042
     Dates: start: 20090101
  3. LOVENOX [Concomitant]
     Dosage: UNK
     Route: 030
  4. FOLIC ACID [Concomitant]
     Dosage: UNK
     Route: 048
  5. VITAMIN B12                        /00056201/ [Concomitant]
     Dosage: UNK
     Route: 048
  6. VITAMIN B6 [Concomitant]
     Dosage: UNK
     Route: 048

REACTIONS (2)
  - AMNESIA [None]
  - CONDITION AGGRAVATED [None]
